FAERS Safety Report 15828835 (Version 1)
Quarter: 2019Q1

REPORT INFORMATION
  Report Type: Spontaneous
  Country: US (occurrence: US)
  Receive Date: 20190115
  Receipt Date: 20190115
  Transmission Date: 20190417
  Serious: No
  Sender: FDA-Public Use
  Company Number: US-ALLERGAN-1765381US

PATIENT
  Sex: Female
  Weight: 63.49 kg

DRUGS (1)
  1. RESTASIS [Suspect]
     Active Substance: CYCLOSPORINE
     Indication: DRY EYE
     Dosage: 1-2 DROPS EVERY 12 HOURS
     Route: 047

REACTIONS (3)
  - Accidental exposure to product [Unknown]
  - Product complaint [Unknown]
  - Wrong dose [Unknown]
